FAERS Safety Report 9893104 (Version 1)
Quarter: 2014Q1

REPORT INFORMATION
  Report Type: Report from Study
  Country: US (occurrence: US)
  Receive Date: 20140213
  Receipt Date: 20140213
  Transmission Date: 20141002
  Serious: Yes (Death)
  Sender: FDA-Public Use
  Company Number: US-ROCHE-1328631

PATIENT
  Age: 61 Year
  Sex: 0

DRUGS (8)
  1. AVASTIN [Suspect]
     Indication: COLORECTAL CANCER METASTATIC
     Dosage: 100CC NORMAL SALINE
     Route: 042
     Dates: start: 20120723
  2. ELOXATIN [Concomitant]
     Dosage: 500CC D5W
     Route: 042
     Dates: start: 20120723
  3. MAGNESIUM SULFATE [Concomitant]
     Dosage: 100CC D5W
     Route: 042
     Dates: start: 20120723
  4. CALCIUM GLUCONATE [Concomitant]
     Route: 042
     Dates: start: 20120723
  5. DECADRON [Concomitant]
     Dosage: 150ML NS
     Route: 042
     Dates: start: 20120723
  6. FOSAPREPITANT DIMEGLUMINE [Concomitant]
     Route: 042
     Dates: start: 20120723
  7. ZOFRAN [Concomitant]
     Dosage: 100CC NS
     Route: 042
     Dates: start: 20120723
  8. ZOMETA [Concomitant]
     Route: 042
     Dates: start: 20120806

REACTIONS (1)
  - Death [Fatal]
